FAERS Safety Report 5335944-X (Version None)
Quarter: 2007Q2

REPORT INFORMATION
  Report Type: 
  Country: None (occurrence: None)
  Receive Date: 20070302
  Receipt Date: 20070116
  Transmission Date: 20071010
  Serious: No
  Sender: FDA-Public Use
  Company Number: PHEH2006US03829

PATIENT
  Age: 74 Year
  Sex: Male

DRUGS (2)
  1. EXJADE [Suspect]
     Indication: MYELODYSPLASTIC SYNDROME
     Dosage: 1250 MG QD ORAL
     Route: 048
     Dates: start: 20060301, end: 20061226
  2. REVLIMID [Suspect]
     Indication: MYELODYSPLASTIC SYNDROME
     Dates: start: 20060701

REACTIONS (2)
  - BLOOD IRON INCREASED [None]
  - DRUG INTERACTION [None]
